FAERS Safety Report 8545078-9 (Version None)
Quarter: 2012Q3

REPORT INFORMATION
  Report Type: 
  Country: None (occurrence: None)
  Receive Date: 20120727
  Receipt Date: 20120719
  Transmission Date: 20120928
  Serious: Yes (Life-Threatening, Hospitalization)
  Sender: FDA-Public Use
  Company Number: DE-ROCHE-1092277

PATIENT
  Sex: Female
  Weight: 83.2 kg

DRUGS (11)
  1. CARVEDILOL [Concomitant]
     Dates: start: 20090310
  2. INSULIN ISOPHANE [Concomitant]
     Dosage: PM
     Dates: start: 20051013
  3. ACETYLSALICYLSAEURE [Concomitant]
     Dates: start: 20101118
  4. LEVOTHYROXIN NATRIUM [Concomitant]
     Dates: start: 20110420
  5. LERCANIDIPINE [Concomitant]
     Dates: start: 20110419
  6. DOXAZOSIN MESYLATE [Concomitant]
     Dates: start: 20110329
  7. MIRCERA [Suspect]
     Indication: NEPHROGENIC ANAEMIA
     Dosage: 17/APR/2012, LAST DOSE PRIOR TO SAE
     Route: 042
     Dates: start: 20090310
  8. HYDROMORPHINE HYDROCHLORIDE [Concomitant]
     Dates: start: 20120109
  9. ALGELDRATE [Concomitant]
     Dates: start: 20120225
  10. TORSEMIDE [Concomitant]
     Dates: start: 20120319
  11. COLECALCIFEROL [Concomitant]
     Dates: start: 20110120

REACTIONS (1)
  - GANGRENE [None]
